FAERS Safety Report 9853729 (Version 1)
Quarter: 2014Q1

REPORT INFORMATION
  Report Type: Spontaneous
  Country: US (occurrence: US)
  Receive Date: 20140129
  Receipt Date: 20140129
  Transmission Date: 20141002
  Serious: No
  Sender: FDA-Public Use
  Company Number: US-GLAXOSMITHKLINE-A1015815A

PATIENT
  Age: 51 Year
  Sex: Female

DRUGS (4)
  1. BUPROPION HYDROCHLORIDE [Suspect]
     Indication: ANXIETY
     Dosage: 150MG PER DAY
     Route: 048
  2. BENZODIAZEPINE [Suspect]
     Route: 065
  3. DIAZEPAM [Concomitant]
  4. LEVOTHYROXINE [Concomitant]

REACTIONS (10)
  - Tremor [Not Recovered/Not Resolved]
  - Panic attack [Not Recovered/Not Resolved]
  - Anxiety [Not Recovered/Not Resolved]
  - Anger [Not Recovered/Not Resolved]
  - Feeling abnormal [Unknown]
  - Disturbance in attention [Not Recovered/Not Resolved]
  - Irritability [Not Recovered/Not Resolved]
  - Palpitations [Not Recovered/Not Resolved]
  - Nervousness [Not Recovered/Not Resolved]
  - Pain [Not Recovered/Not Resolved]
